FAERS Safety Report 6348875-3 (Version None)
Quarter: 2009Q3

REPORT INFORMATION
  Report Type: 
  Country: None (occurrence: None)
  Receive Date: 20090911
  Receipt Date: 20090901
  Transmission Date: 20100115
  Serious: Yes (Hospitalization)
  Sender: FDA-Public Use
  Company Number: FR-PFIZER INC-2009262348

PATIENT
  Age: 75 Year

DRUGS (8)
  1. TRIFLUCAN [Suspect]
     Indication: SKIN CANDIDA
     Dosage: 100 MG, 1X/DAY
     Route: 048
     Dates: start: 20090731, end: 20090806
  2. TIENAM [Suspect]
     Indication: INFECTION
     Dosage: 500 MG, 4X/DAY
     Route: 042
     Dates: start: 20090721, end: 20090806
  3. LASIX [Suspect]
     Dosage: 20 MG, 2X/DAY
     Route: 048
     Dates: start: 20090727, end: 20090807
  4. VANCOMYCIN [Suspect]
     Indication: INFECTION
     Dosage: 2.5 G, 1X/DAY
     Route: 042
     Dates: start: 20090721, end: 20090805
  5. PEVARYL [Suspect]
     Indication: CANDIDIASIS
     Dosage: UNK
     Route: 003
     Dates: start: 20090722, end: 20090813
  6. DOLIPRANE [Concomitant]
     Indication: ANALGESIA
  7. LYRICA [Concomitant]
     Indication: ANALGESIA
     Dosage: UNK
     Dates: start: 20090802
  8. TOPALGIC [Concomitant]
     Indication: ANALGESIA
     Dosage: UNK
     Dates: start: 20090803

REACTIONS (1)
  - BONE MARROW FAILURE [None]
